FAERS Safety Report 9752198 (Version 1)
Quarter: 2013Q4

REPORT INFORMATION
  Report Type: Spontaneous
  Country: US (occurrence: None)
  Receive Date: 20131211
  Receipt Date: 20131211
  Transmission Date: 20140711
  Serious: No
  Sender: FDA-Public Use
  Company Number: None

PATIENT
  Age: 84 Year
  Sex: Female

DRUGS (1)
  1. PARICALCITOL [Suspect]
     Route: 048
     Dates: start: 20131202, end: 20131205

REACTIONS (2)
  - Hallucination, auditory [None]
  - Product substitution issue [None]
